FAERS Safety Report 9355667 (Version 1)
Quarter: 2013Q2

REPORT INFORMATION
  Report Type: Spontaneous
  Country: US (occurrence: None)
  Receive Date: 20130618
  Receipt Date: 20130618
  Transmission Date: 20140414
  Serious: Yes (Other)
  Sender: FDA-Public Use
  Company Number: None

PATIENT
  Sex: Female
  Weight: 122.47 kg

DRUGS (1)
  1. ATORVASTATIN [Suspect]
     Indication: BLOOD CHOLESTEROL INCREASED
     Route: 048
     Dates: start: 20121025, end: 20130524

REACTIONS (8)
  - Myalgia [None]
  - Arthralgia [None]
  - Pain in extremity [None]
  - Contusion [None]
  - Dizziness [None]
  - Nausea [None]
  - Mood swings [None]
  - Depression [None]
